FAERS Safety Report 4751915-6 (Version None)
Quarter: 2005Q3

REPORT INFORMATION
  Report Type: 
  Country: None (occurrence: None)
  Receive Date: 20050824
  Receipt Date: 20050815
  Transmission Date: 20060218
  Serious: Yes (Hospitalization)
  Sender: FDA-Public Use
  Company Number: NO-MERCK-0508NOR00008

PATIENT
  Age: 72 Year
  Sex: Female

DRUGS (10)
  1. VIOXX [Suspect]
     Indication: FIBROMYALGIA
     Route: 048
     Dates: start: 20010522, end: 20041201
  2. METOPROLOL TARTRATE [Concomitant]
     Route: 048
     Dates: start: 20010101
  3. DIPYRIDAMOLE [Concomitant]
     Route: 048
     Dates: start: 20010101
  4. CANDESARTAN CILEXETIL AND HYDROCHLOROTHIAZIDE [Concomitant]
     Route: 048
     Dates: start: 20010101
  5. CITALOPRAM HYDROBROMIDE [Concomitant]
     Route: 048
     Dates: start: 20010101
  6. LEVOTHYROXINE SODIUM [Concomitant]
     Route: 048
     Dates: start: 20010101
  7. LERCANIDIPINE HYDROCHLORIDE [Concomitant]
     Route: 048
     Dates: start: 20030101
  8. ZOPICLONE [Concomitant]
     Route: 048
     Dates: start: 20031001
  9. ACETAMINOPHEN AND CODEINE PHOSPHATE [Concomitant]
     Route: 048
     Dates: start: 20030101
  10. NITROGLYCERIN [Concomitant]
     Route: 048
     Dates: start: 20040101

REACTIONS (1)
  - CEREBRAL INFARCTION [None]
